FAERS Safety Report 9592417 (Version 1)
Quarter: 2013Q4

REPORT INFORMATION
  Report Type: Spontaneous
  Country: US (occurrence: None)
  Receive Date: 20131003
  Receipt Date: 20131003
  Transmission Date: 20140711
  Serious: Yes (Hospitalization)
  Sender: FDA-Public Use
  Company Number: None

PATIENT
  Age: 82 Year
  Sex: Female
  Weight: 60 kg

DRUGS (7)
  1. LOSARTAN/HCTZ 100/25 [Suspect]
     Indication: HYPERTENSION
     Dosage: UNKNOWN-PRIOR TO ADMISSION
     Route: 048
  2. ASPIRIN [Concomitant]
  3. FERROUS SULFATE [Concomitant]
  4. METOPROLOL XL [Concomitant]
  5. MULTIVITAMIN [Concomitant]
  6. KCL [Concomitant]
  7. SIMVASTATIN [Concomitant]

REACTIONS (5)
  - Asthenia [None]
  - Mental status changes [None]
  - Hyponatraemia [None]
  - Urinary tract infection [None]
  - Asthenia [None]
